FAERS Safety Report 20552593 (Version 1)
Quarter: 2022Q1

REPORT INFORMATION
  Report Type: Spontaneous
  Country: US (occurrence: None)
  Receive Date: 20220303
  Receipt Date: 20220303
  Transmission Date: 20220424
  Serious: Yes (Death)
  Sender: FDA-Public Use
  Company Number: None

PATIENT
  Sex: Male

DRUGS (1)
  1. CYCLOPHOSPHAMIDE [Suspect]
     Active Substance: CYCLOPHOSPHAMIDE
     Indication: Agranulocytosis
     Dosage: FREQUENCY : EVERY OTHER DAY;TAKE 1 CAPSULE BY MOUTH EVERY OTHER DAY AS DIRECTED BY PHYSICIAN.?
     Route: 048
     Dates: start: 20210114

REACTIONS (1)
  - Death [None]
